FAERS Safety Report 19448502 (Version 1)
Quarter: 2021Q2

REPORT INFORMATION
  Report Type: Spontaneous
  Country: US (occurrence: US)
  Receive Date: 20210622
  Receipt Date: 20210622
  Transmission Date: 20210717
  Serious: No
  Sender: FDA-Public Use
  Company Number: ALC2020US004635

PATIENT

DRUGS (1)
  1. PATADAY [Suspect]
     Active Substance: OLOPATADINE HYDROCHLORIDE
     Indication: EYE PRURITUS
     Route: 065

REACTIONS (4)
  - Corneal abrasion [Unknown]
  - Eye disorder [Unknown]
  - Foreign body sensation in eyes [Unknown]
  - Drug ineffective [Unknown]
